FAERS Safety Report 8362263-X (Version None)
Quarter: 2012Q2

REPORT INFORMATION
  Report Type: 
  Country: None (occurrence: None)
  Receive Date: 20120515
  Receipt Date: 20120503
  Transmission Date: 20120825
  Serious: Yes (Other)
  Sender: FDA-Public Use
  Company Number: CA-ELI_LILLY_AND_COMPANY-CA201205001330

PATIENT
  Age: 58 Year
  Sex: Female

DRUGS (11)
  1. OXYCONTIN [Concomitant]
  2. NORVASC [Concomitant]
  3. SEROQUEL [Concomitant]
  4. REMERON [Concomitant]
  5. SENNA-MINT WAF [Concomitant]
  6. FORTEO [Suspect]
     Indication: OSTEOPOROSIS
     Dosage: 20 UG, QD
     Route: 058
     Dates: start: 20110810
  7. CYMBALTA [Concomitant]
  8. VITAMIN D [Concomitant]
  9. CALCIUM [Concomitant]
  10. ALTACE [Concomitant]
  11. ELAVIL [Concomitant]

REACTIONS (2)
  - HIP SURGERY [None]
  - PAIN [None]
